FAERS Safety Report 5194355-0 (Version None)
Quarter: 2006Q4

REPORT INFORMATION
  Report Type: 
  Country: None (occurrence: None)
  Receive Date: 20061228
  Receipt Date: 20061128
  Transmission Date: 20070319
  Serious: Yes (Other)
  Sender: FDA-Public Use
  Company Number: GB-PFIZER INC-2006150476

PATIENT
  Age: 72 Year
  Sex: Female

DRUGS (4)
  1. ALDACTONE [Suspect]
     Dosage: DAILY DOSE:12.5MG
  2. LISINOPRIL [Suspect]
     Dosage: DAILY DOSE:10MG
  3. FELODIPINE [Concomitant]
     Dosage: DAILY DOSE:5MG
  4. BENDROFLUMETHIAZIDE [Concomitant]
     Dosage: DAILY DOSE:2.5MG

REACTIONS (5)
  - BRONCHOSPASM [None]
  - EPISTAXIS [None]
  - HYPERKALAEMIA [None]
  - NASAL CONGESTION [None]
  - NAUSEA [None]
